FAERS Safety Report 15596752 (Version 1)
Quarter: 2018Q4

REPORT INFORMATION
  Report Type: Spontaneous
  Country: GB (occurrence: GB)
  Receive Date: 20181108
  Receipt Date: 20181108
  Transmission Date: 20190205
  Serious: Yes (Life-Threatening)
  Sender: FDA-Public Use
  Company Number: GB-TEVA-2018-GB-972369

PATIENT
  Age: 74 Year
  Sex: Male

DRUGS (10)
  1. ACICLOVIR [Concomitant]
     Active Substance: ACYCLOVIR
     Route: 065
  2. CARBOCISTEINE [Concomitant]
     Active Substance: CARBOCYSTEINE
     Route: 065
  3. PREDNISOLONE. [Suspect]
     Active Substance: PREDNISOLONE
     Indication: PARAPROTEINAEMIA
     Dosage: 6 CYCLES. COURSE OF 5 DAYS.
     Route: 048
     Dates: start: 20120401, end: 20121001
  4. BISOPROLOL [Concomitant]
     Active Substance: BISOPROLOL
     Route: 065
  5. OMEPRAZOLE. [Concomitant]
     Active Substance: OMEPRAZOLE
     Route: 065
  6. BICALUTAMIDE. [Concomitant]
     Active Substance: BICALUTAMIDE
     Route: 065
  7. WARFARIN [Concomitant]
     Active Substance: WARFARIN
     Route: 065
  8. SIMVASTATIN. [Concomitant]
     Active Substance: SIMVASTATIN
     Route: 065
  9. CYCLOPHOSPHAMIDE. [Suspect]
     Active Substance: CYCLOPHOSPHAMIDE
     Indication: PARAPROTEINAEMIA
     Dosage: 6 CYCLES.
     Route: 042
     Dates: start: 20120401, end: 20121001
  10. RITUXIMAB. [Suspect]
     Active Substance: RITUXIMAB
     Indication: PARAPROTEINAEMIA
     Dosage: 6 CYCLES.
     Route: 042
     Dates: start: 20120401, end: 20121001

REACTIONS (3)
  - Glioblastoma multiforme [Not Recovered/Not Resolved]
  - Hemiparesis [Unknown]
  - Seizure [Unknown]

NARRATIVE: CASE EVENT DATE: 2018
